FAERS Safety Report 5024688-X (Version None)
Quarter: 2006Q2

REPORT INFORMATION
  Report Type: 
  Country: None (occurrence: None)
  Receive Date: 20060613
  Receipt Date: 20051111
  Transmission Date: 20061013
  Serious: Yes (Hospitalization)
  Sender: FDA-Public Use
  Company Number: US-BRISTOL-MYERS SQUIBB COMPANY-13178587

PATIENT
  Age: 80 Year
  Sex: Female
  Weight: 52 kg

DRUGS (5)
  1. NADOLOL [Suspect]
     Indication: HYPERTENSION
     Dosage: INTERRUPTED 24-AUG-2005
  2. ASPIRIN [Concomitant]
  3. LIPITOR [Concomitant]
  4. ONE-A-DAY [Concomitant]
  5. VITAMIN E [Concomitant]

REACTIONS (2)
  - HEART RATE DECREASED [None]
  - HYPOTENSION [None]
